FAERS Safety Report 25325042 (Version 7)
Quarter: 2025Q4

REPORT INFORMATION
  Report Type: Report from Study
  Country: CA (occurrence: CA)
  Receive Date: 20250516
  Receipt Date: 20251215
  Transmission Date: 20260117
  Serious: Yes (Death, Life-Threatening, Hospitalization, Other)
  Sender: JOHNSON AND JOHNSON
  Company Number: CA-JNJFOC-20201023768

PATIENT
  Age: 69 Year
  Sex: Male
  Weight: 74.8 kg

DRUGS (4)
  1. TREMFYA [Suspect]
     Active Substance: GUSELKUMAB
     Indication: Psoriasis
     Dates: start: 20200115, end: 20210329
  2. TREMFYA [Suspect]
     Active Substance: GUSELKUMAB
     Dates: start: 20200115, end: 20250621
  3. ASPIRIN [Concomitant]
     Active Substance: ASPIRIN
     Indication: Product used for unknown indication
  4. PREDNISONE [Concomitant]
     Active Substance: PREDNISONE
     Indication: Product used for unknown indication

REACTIONS (9)
  - Sepsis [Fatal]
  - Iron deficiency anaemia [Not Recovered/Not Resolved]
  - Hepatic cirrhosis [Not Recovered/Not Resolved]
  - Staphylococcal infection [Unknown]
  - Cardiac failure [Unknown]
  - Ascites [Unknown]
  - Duodenal ulcer [Unknown]
  - Polyp [Unknown]
  - Hypertension [Unknown]

NARRATIVE: CASE EVENT DATE: 20200921
